FAERS Safety Report 9368873 (Version 1)
Quarter: 2013Q2

REPORT INFORMATION
  Report Type: Report from Study
  Country: AU (occurrence: AU)
  Receive Date: 20130626
  Receipt Date: 20130626
  Transmission Date: 20140414
  Serious: Yes (Other)
  Sender: FDA-Public Use
  Company Number: AU-ROCHE-1240365

PATIENT
  Age: 88 Year
  Sex: Female

DRUGS (1)
  1. RANIBIZUMAB [Suspect]
     Indication: AGE-RELATED MACULAR DEGENERATION
     Route: 050
     Dates: start: 201112

REACTIONS (5)
  - Eye haemorrhage [Unknown]
  - Weight bearing difficulty [Unknown]
  - Scar [Unknown]
  - Visual impairment [Unknown]
  - Influenza [Recovering/Resolving]
